FAERS Safety Report 11628517 (Version 2)
Quarter: 2015Q4

REPORT INFORMATION
  Report Type: Spontaneous
  Country: GB (occurrence: GB)
  Receive Date: 20151014
  Receipt Date: 20151203
  Transmission Date: 20160304
  Serious: Yes (Death, Hospitalization, Other)
  Sender: FDA-Public Use
  Company Number: GB-TEVA-599704ACC

PATIENT
  Age: 76 Year
  Sex: Female

DRUGS (2)
  1. FRAGMIN [Interacting]
     Active Substance: DALTEPARIN SODIUM
     Route: 065
  2. WARFARIN [Suspect]
     Active Substance: WARFARIN
     Route: 065

REACTIONS (3)
  - Drug interaction [Unknown]
  - Contraindication to medical treatment [Unknown]
  - Cerebral haemorrhage [Fatal]

NARRATIVE: CASE EVENT DATE: 20150822
